FAERS Safety Report 11794009 (Version 2)
Quarter: 2015Q4

REPORT INFORMATION
  Report Type: Spontaneous
  Country: FR (occurrence: FR)
  Receive Date: 20151202
  Receipt Date: 20151210
  Transmission Date: 20160305
  Serious: Yes (Death, Other)
  Sender: FDA-Public Use
  Company Number: FR-TEVA-614306ISR

PATIENT
  Age: 65 Year
  Sex: Male

DRUGS (5)
  1. GEMCITABINE [Suspect]
     Active Substance: GEMCITABINE\GEMCITABINE HYDROCHLORIDE
     Route: 065
  2. LISINOPRIL. [Concomitant]
     Active Substance: LISINOPRIL
     Route: 065
  3. CAPECITABINE. [Concomitant]
     Active Substance: CAPECITABINE
     Route: 065
  4. CELECOXIB. [Concomitant]
     Active Substance: CELECOXIB
     Route: 065
  5. CALCIUM [Concomitant]
     Active Substance: CALCIUM
     Route: 065

REACTIONS (9)
  - Skin lesion [Unknown]
  - Thrombocytopenia [Unknown]
  - Thrombotic microangiopathy [Fatal]
  - Fatigue [Unknown]
  - Epistaxis [Unknown]
  - Hypertension [Unknown]
  - Anaemia [Unknown]
  - Acute kidney injury [Unknown]
  - Asthenia [Unknown]
